FAERS Safety Report 9834039 (Version 2)
Quarter: 2014Q1

REPORT INFORMATION
  Report Type: Spontaneous
  Country: DE (occurrence: DE)
  Receive Date: 20140122
  Receipt Date: 20140204
  Transmission Date: 20141002
  Serious: Yes (Other)
  Sender: FDA-Public Use
  Company Number: DE-ROCHE-1334129

PATIENT
  Age: 57 Year
  Sex: Female

DRUGS (8)
  1. ZELBORAF [Suspect]
     Indication: MALIGNANT MELANOMA
     Route: 048
     Dates: start: 201307, end: 20140114
  2. PANTOPRAZOL [Concomitant]
     Route: 048
  3. HYDROMORPHONE [Concomitant]
     Indication: PAIN
     Dosage: PERMANENTLY (NOS)
     Route: 042
  4. PREGABALIN [Concomitant]
     Indication: PAIN
     Route: 048
  5. MIRTAZAPIN [Concomitant]
     Indication: DEPRESSION
     Dosage: DAYS
     Route: 048
  6. VALSARTAN [Concomitant]
     Indication: HYPERTENSION
     Route: 048
  7. SODIUM PICOSULFATE [Concomitant]
     Dosage: 10 DROPS PER DAY
     Route: 065
  8. LORAZEPAM [Concomitant]
     Dosage: AS REQUIRED
     Route: 065

REACTIONS (6)
  - Malignant neoplasm progression [Unknown]
  - Pleural effusion [Unknown]
  - Blood lactate dehydrogenase increased [Not Recovered/Not Resolved]
  - Aspartate aminotransferase increased [Unknown]
  - Blood alkaline phosphatase increased [Unknown]
  - C-reactive protein increased [Unknown]
